FAERS Safety Report 11622948 (Version 1)
Quarter: 2015Q4

REPORT INFORMATION
  Report Type: Spontaneous
  Country: US (occurrence: US)
  Receive Date: 20151013
  Receipt Date: 20151013
  Transmission Date: 20160304
  Serious: No
  Sender: FDA-Public Use
  Company Number: US-JNJFOC-20150101146

PATIENT
  Age: 80 Year
  Sex: Female
  Weight: 69.4 kg

DRUGS (1)
  1. TYLENOL REGULAR STRENGTH [Suspect]
     Active Substance: ACETAMINOPHEN
     Indication: BACK PAIN
     Dosage: DOSAGE - 1 - 2 TABLETS ????INTERVAL - AS NEEDED FOR PAIN
     Route: 048
     Dates: start: 20141228, end: 20141228

REACTIONS (3)
  - Dysphagia [Recovered/Resolved]
  - Product quality issue [Unknown]
  - Wrong technique in product usage process [Unknown]

NARRATIVE: CASE EVENT DATE: 20141228
